FAERS Safety Report 23378083 (Version 1)
Quarter: 2024Q1

REPORT INFORMATION
  Report Type: Spontaneous
  Country: US (occurrence: None)
  Receive Date: 20240105
  Receipt Date: 20240105
  Transmission Date: 20240410
  Serious: Yes (Hospitalization, Other)
  Sender: FDA-Public Use
  Company Number: None

PATIENT
  Age: 67 Year
  Sex: Female
  Weight: 78.3 kg

DRUGS (7)
  1. OZEMPIC [Suspect]
     Active Substance: SEMAGLUTIDE
     Indication: Glycosylated haemoglobin increased
     Dosage: OTHER FREQUENCY : WEEKLY INJECTIONS;?
     Route: 030
     Dates: start: 20230317, end: 20230929
  2. OZEMPIC [Suspect]
     Active Substance: SEMAGLUTIDE
     Indication: Weight control
  3. MOUNJARO [Suspect]
     Active Substance: TIRZEPATIDE
     Indication: Glycosylated haemoglobin increased
     Dosage: OTHER FREQUENCY : WEEKLY INJECTION;?
     Route: 030
     Dates: start: 20231006, end: 20231117
  4. MOUNJARO [Suspect]
     Active Substance: TIRZEPATIDE
     Indication: Weight decreased
  5. LACTULOSE [Concomitant]
     Active Substance: LACTULOSE
  6. Megesstrol [Concomitant]
  7. LOSARTAN [Concomitant]
     Active Substance: LOSARTAN

REACTIONS (12)
  - Food aversion [None]
  - Parosmia [None]
  - Decreased appetite [None]
  - Alopecia [None]
  - Nausea [None]
  - Constipation [None]
  - Syncope [None]
  - Fall [None]
  - Face injury [None]
  - Head injury [None]
  - Presyncope [None]
  - Dehydration [None]

NARRATIVE: CASE EVENT DATE: 20231201
